FAERS Safety Report 4351015-3 (Version None)
Quarter: 2004Q2

REPORT INFORMATION
  Report Type: 
  Country: None (occurrence: None)
  Receive Date: 20040427
  Receipt Date: 20040405
  Transmission Date: 20050107
  Serious: Yes (Hospitalization, Other)
  Sender: FDA-Public Use
  Company Number: 20040300234

PATIENT
  Age: 64 Year
  Sex: Female

DRUGS (20)
  1. SUPRANE [Suspect]
     Indication: ANAESTHESIA
     Dates: start: 20040304, end: 20040304
  2. ACETYLCYSTEINE (ACC) [Concomitant]
  3. KONAKION [Concomitant]
  4. PERFLAGAN [Concomitant]
  5. LASIX [Concomitant]
  6. CEFUROXIME [Concomitant]
  7. METRONIDAZOLE [Concomitant]
  8. DIOVANE [Concomitant]
  9. BRISERIN [Concomitant]
  10. NEXIUM [Concomitant]
  11. OLICLINOMEL 5% + KCL 7.45% + NACL 20% [Concomitant]
  12. NFX + INZOLEN HK (TRACE ELEMENTS) + KCL 7.45% [Concomitant]
  13. SORBITOL LACTATED RINGER'S SOLUTION [Concomitant]
  14. INTRAMIN G [Concomitant]
  15. XYLIT 10% + ZATIC (RANITIDINE) [Concomitant]
  16. NAROPINE 0.2 % [Concomitant]
  17. THIOPENTAL SODIUM [Concomitant]
  18. DIAZEPAM [Concomitant]
  19. FENTANYL [Concomitant]
  20. PANCURONIUM [Concomitant]

REACTIONS (8)
  - ANAESTHETIC COMPLICATION [None]
  - HEPATIC FAILURE [None]
  - HEPATITIS A [None]
  - HYPOTENSION [None]
  - LIVER TRANSPLANT [None]
  - POST PROCEDURAL COMPLICATION [None]
  - PROCEDURAL COMPLICATION [None]
  - TOXOPLASMOSIS [None]
